FAERS Safety Report 20868259 (Version 1)
Quarter: 2022Q2

REPORT INFORMATION
  Report Type: Spontaneous
  Country: AU (occurrence: AU)
  Receive Date: 20220524
  Receipt Date: 20220524
  Transmission Date: 20220721
  Serious: Yes (Other)
  Sender: FDA-Public Use
  Company Number: AU-NOVARTISPH-NVSC2022AU117982

PATIENT
  Age: 81 Year

DRUGS (5)
  1. BEOVU [Suspect]
     Active Substance: BROLUCIZUMAB-DBLL
     Indication: Neovascular age-related macular degeneration
     Dosage: UNK
     Route: 065
     Dates: start: 20200910
  2. BEOVU [Suspect]
     Active Substance: BROLUCIZUMAB-DBLL
     Dosage: UNK (SLOWLY EXTENDED OUT INJECTIONS TO 10 WEEKS)
     Route: 065
  3. BEOVU [Suspect]
     Active Substance: BROLUCIZUMAB-DBLL
     Dosage: UNK, REDUCED INTERVAL TO 9 WEEKS
     Route: 065
     Dates: start: 20210916
  4. BEOVU [Suspect]
     Active Substance: BROLUCIZUMAB-DBLL
     Dosage: UNK, REDUCED INTERVAL TO 8 WEEKS
     Route: 065
     Dates: start: 20220124
  5. BEOVU [Suspect]
     Active Substance: BROLUCIZUMAB-DBLL
     Dosage: UNK, REINJECTED AND KEPT AT 8 WEEKS
     Route: 065
     Dates: start: 20220321

REACTIONS (3)
  - Retinal oedema [Recovering/Resolving]
  - Macular oedema [Not Recovered/Not Resolved]
  - Visual acuity reduced [Unknown]

NARRATIVE: CASE EVENT DATE: 20210916
